FAERS Safety Report 7848375 (Version 1)
Quarter: 2020Q3

REPORT INFORMATION
  Report Type: Spontaneous
  Country: IE (occurrence: IE)
  Receive Date: 20110309
  Receipt Date: 20110309
  Transmission Date: 20201104
  Serious: Yes (Hospitalization)
  Sender: FDA-Public Use
  Company Number: IE-ROCHE-763801

PATIENT
  Age: 80 Year
  Sex: Male

DRUGS (1)
  1. IBANDRONIC ACID. [Suspect]
     Active Substance: IBANDRONIC ACID
     Dosage: 50 MG DAILY; STOPPED ON ANUNSPECIFIED DAY IN MARCH2011.
     Route: 065

REACTIONS (1)
  - Breast cancer [Not Recovered/Not Resolved]
